FAERS Safety Report 20993024 (Version 2)
Quarter: 2022Q2

REPORT INFORMATION
  Report Type: Spontaneous
  Country: DE (occurrence: DE)
  Receive Date: 20220622
  Receipt Date: 20220627
  Transmission Date: 20220721
  Serious: Yes (Life-Threatening, Other)
  Sender: FDA-Public Use
  Company Number: DE-ASTELLAS-2022US021430

PATIENT
  Sex: Male
  Weight: 60 kg

DRUGS (10)
  1. REGADENOSON [Suspect]
     Active Substance: REGADENOSON
     Indication: Scan myocardial perfusion
     Dosage: 1 DF, ONCE (SINGLE)
     Route: 042
     Dates: start: 20220602
  2. REGADENOSON [Suspect]
     Active Substance: REGADENOSON
     Indication: Scan myocardial perfusion
     Dosage: 1 DF, ONCE (SINGLE)
     Route: 042
     Dates: start: 20220602
  3. REGADENOSON [Suspect]
     Active Substance: REGADENOSON
     Indication: Scan myocardial perfusion
     Dosage: 1 DF, ONCE (SINGLE)
     Route: 042
     Dates: start: 20220602
  4. REGADENOSON [Suspect]
     Active Substance: REGADENOSON
     Indication: Scan myocardial perfusion
     Dosage: 1 DF, ONCE (SINGLE)
     Route: 042
     Dates: start: 20220602
  5. REGADENOSON [Suspect]
     Active Substance: REGADENOSON
     Indication: Coronary artery disease
  6. REGADENOSON [Suspect]
     Active Substance: REGADENOSON
     Indication: Coronary artery disease
  7. REGADENOSON [Suspect]
     Active Substance: REGADENOSON
     Indication: Coronary artery disease
  8. REGADENOSON [Suspect]
     Active Substance: REGADENOSON
     Indication: Coronary artery disease
  9. METOPROLOL [Concomitant]
     Active Substance: METOPROLOL
     Indication: Hypertension
     Dosage: 23.75 UNK UNITS, UNKNOWN FREQ.
     Route: 048
  10. METOPROLOL [Concomitant]
     Active Substance: METOPROLOL
     Indication: Atrial fibrillation

REACTIONS (2)
  - Cardiogenic shock [Recovered/Resolved]
  - Myocardial infarction [Recovered/Resolved]

NARRATIVE: CASE EVENT DATE: 20220602
